FAERS Safety Report 8570033-2 (Version None)
Quarter: 2012Q3

REPORT INFORMATION
  Report Type: 
  Country: None (occurrence: None)
  Receive Date: 20120803
  Receipt Date: 20120223
  Transmission Date: 20120928
  Serious: No
  Sender: FDA-Public Use
  Company Number: US-ABBOTT-12P-163-0907836-00

PATIENT
  Sex: Male
  Weight: 82.628 kg

DRUGS (3)
  1. METOPROLOL TARTRATE [Concomitant]
     Indication: CARDIAC MURMUR
     Dosage: DAILY
  2. ASPIRIN [Concomitant]
     Indication: PRODUCT USED FOR UNKNOWN INDICATION
  3. NIASPAN [Suspect]
     Indication: BLOOD TRIGLYCERIDES INCREASED
     Dosage: DAILY
     Dates: start: 20110201

REACTIONS (2)
  - FLUSHING [None]
  - PARAESTHESIA [None]
